FAERS Safety Report 6304077-8 (Version None)
Quarter: 2009Q3

REPORT INFORMATION
  Report Type: 
  Country: None (occurrence: None)
  Receive Date: 20090810
  Receipt Date: 20090810
  Transmission Date: 20100115
  Serious: Yes (Hospitalization)
  Sender: FDA-Public Use
  Company Number: None

PATIENT
  Age: 35 Year
  Sex: Female
  Weight: 75.2971 kg

DRUGS (2)
  1. TYGACIL [Suspect]
     Indication: DEBRIDEMENT
     Dosage: 50 MG EVERY 12 HOURS IV
     Route: 042
     Dates: start: 20090720, end: 20090805
  2. TYGACIL [Suspect]
     Indication: DECUBITUS ULCER
     Dosage: 50 MG EVERY 12 HOURS IV
     Route: 042
     Dates: start: 20090720, end: 20090805

REACTIONS (1)
  - PANCREATITIS ACUTE [None]
